FAERS Safety Report 7383912-9 (Version None)
Quarter: 2011Q1

REPORT INFORMATION
  Report Type: 
  Country: None (occurrence: None)
  Receive Date: 20110330
  Receipt Date: 20110228
  Transmission Date: 20110831
  Serious: No
  Sender: FDA-Public Use
  Company Number: US-MYLANLABS-2011S1004199

PATIENT
  Age: 15 Year
  Sex: Male

DRUGS (2)
  1. ANASTROZOLE [Suspect]
     Indication: PROPHYLAXIS
     Route: 048
     Dates: start: 20101101
  2. CENTRUM [Concomitant]
     Indication: VITAMIN SUPPLEMENTATION

REACTIONS (6)
  - CHILLS [None]
  - SINUSITIS [None]
  - COUGH [None]
  - DYSPNOEA [None]
  - HEADACHE [None]
  - FATIGUE [None]
